FAERS Safety Report 13389659 (Version 1)
Quarter: 2017Q1

REPORT INFORMATION
  Report Type: Spontaneous
  Country: AU (occurrence: AU)
  Receive Date: 20170331
  Receipt Date: 20170331
  Transmission Date: 20170429
  Serious: Yes (Death, Other)
  Sender: FDA-Public Use
  Company Number: AU-ACCORD-049716

PATIENT
  Age: 56 Year
  Sex: Female

DRUGS (3)
  1. PREDNISONE. [Suspect]
     Active Substance: PREDNISONE
     Indication: VASCULITIS
  2. METHOTREXATE. [Suspect]
     Active Substance: METHOTREXATE
     Indication: VASCULITIS
     Route: 048
  3. METHYLPREDNISOLONE. [Suspect]
     Active Substance: METHYLPREDNISOLONE
     Indication: VASCULITIS
     Route: 042

REACTIONS (3)
  - Febrile neutropenia [Unknown]
  - Acute myeloid leukaemia [Fatal]
  - Clostridium difficile colitis [Unknown]
